FAERS Safety Report 6102455-3 (Version None)
Quarter: 2009Q1

REPORT INFORMATION
  Report Type: 
  Country: None (occurrence: None)
  Receive Date: 20090304
  Receipt Date: 20090226
  Transmission Date: 20090719
  Serious: Yes (Other)
  Sender: FDA-Public Use
  Company Number: BR-ABBOTT-09P-020-0501023-00

PATIENT
  Sex: Female
  Weight: 80 kg

DRUGS (4)
  1. HUMIRA [Suspect]
     Indication: RHEUMATOID ARTHRITIS
     Route: 058
     Dates: start: 20081013
  2. MESALAZINE [Concomitant]
     Indication: PROCTOCOLITIS
  3. LEVOTHYROXINE SODIUM [Concomitant]
     Indication: HYPOTHYROIDISM
     Dosage: NOT REPORTED
  4. UNKNOWN HOMEOPATHIC THERAPY [Concomitant]
     Indication: FIBROMYALGIA
     Dosage: NOT REPORTED

REACTIONS (1)
  - NEPHROLITHIASIS [None]
